FAERS Safety Report 15467514 (Version 4)
Quarter: 2021Q1

REPORT INFORMATION
  Report Type: Report from Study
  Country: DE (occurrence: DE)
  Receive Date: 20181005
  Receipt Date: 20210311
  Transmission Date: 20210419
  Serious: Yes (Congenital Anomaly, Other)
  Sender: FDA-Public Use
  Company Number: DE-AUROBINDO-AUR-APL-2018-048734

PATIENT
  Sex: Male

DRUGS (8)
  1. INSULIN ASPART [Concomitant]
     Active Substance: INSULIN ASPART
     Indication: HYPERTENSION
     Dosage: UNK, GESTATION PERIOD AT EXPOSURE FROM 0 TO WEEK 27 PLUS DAY 6
     Route: 064
  2. METOPROLOL. [Concomitant]
     Active Substance: METOPROLOL
     Indication: HYPERTENSION
     Dosage: UNK
     Route: 064
  3. METHYLDOPA. [Concomitant]
     Active Substance: METHYLDOPA
     Indication: HYPERTENSION
     Dosage: UNK, GESTATION PERIOD AT EXPOSURE FROM WEEK 14 TO 27 PLUS DAY 6
     Route: 064
  4. DIHYDRALAZINE [Concomitant]
     Active Substance: DIHYDRALAZINE
     Indication: HYPERTENSION
     Dosage: UNK, GESTATION PERIOD AT EXPOSURE FROM WEEK 24 TO 27 PLUS DAY 6
     Route: 064
  5. VALSARTAN. [Suspect]
     Active Substance: VALSARTAN
     Indication: HYPERTENSION
     Dosage: 160 MILLIGRAM, DAILY, GESTATION PERIOD AT EXPOSURE FROM 0 TO WEEK 13 PLUS DAY 4
     Route: 064
  6. NICOTINE. [Concomitant]
     Active Substance: NICOTINE
     Indication: HYPERTENSION
     Dosage: UNK, GESTATION PERIOD AT EXPOSURE FROM 0 TO WEEK 27 PLUS DAY 6
     Route: 064
  7. LEVOTHYROXINE. [Concomitant]
     Active Substance: LEVOTHYROXINE
     Indication: HYPERTENSION
     Dosage: , GESTATION PERIOD AT EXPOSURE FROM 0 TO WEEK 27 PLUS DAY 6 UNK
     Route: 064
  8. HYDROCHLOROTHIAZIDE. [Concomitant]
     Active Substance: HYDROCHLOROTHIAZIDE
     Indication: HYPERTENSION
     Dosage: UNK, GESTATION PERIOD AT EXPOSURE FROM 0 TO WEEK 13 PLUS DAY 4
     Route: 064

REACTIONS (10)
  - Pulmonary valve stenosis congenital [Unknown]
  - Hypoacusis [Unknown]
  - Atrial septal defect [Unknown]
  - Inguinal hernia [Unknown]
  - Ventricular septal defect [Unknown]
  - Accidental exposure to product [Unknown]
  - Patent ductus arteriosus [Recovering/Resolving]
  - Foetal growth restriction [Unknown]
  - Hypospadias [Unknown]
  - Foetal exposure during pregnancy [Unknown]
